FAERS Safety Report 4720985-3 (Version None)
Quarter: 2005Q3

REPORT INFORMATION
  Report Type: 
  Country: None (occurrence: None)
  Receive Date: 20050720
  Receipt Date: 20050628
  Transmission Date: 20060218
  Serious: Yes (Hospitalization)
  Sender: FDA-Public Use
  Company Number: 2005096203

PATIENT
  Age: 30 Year
  Sex: Female
  Weight: 53 kg

DRUGS (3)
  1. ZITHROMAX [Suspect]
     Indication: PYREXIA
     Dosage: 500 MG (500 MG, 1 IN 1D),ORAL
     Route: 048
     Dates: start: 20050408, end: 20050416
  2. MEICELIN (CEFMINOX) [Suspect]
     Indication: PYREXIA
     Dosage: 1 GRAM (1 GRAM, 1 IN 1 D),INTRAVENOUS
     Route: 042
     Dates: start: 20050415, end: 20050415
  3. PHENOBARBITAL TAB [Suspect]
     Indication: POSTOPERATIVE ANALGESIA
     Dosage: 80 MG (40 MG,2 IN 1 D),ORAL
     Route: 048
     Dates: start: 20050322, end: 20050418

REACTIONS (5)
  - DRUG ERUPTION [None]
  - LIVER DISORDER [None]
  - LYMPHOCYTE STIMULATION TEST POSITIVE [None]
  - RASH PAPULAR [None]
  - STOMATITIS [None]
